FAERS Safety Report 24334759 (Version 1)
Quarter: 2024Q3

REPORT INFORMATION
  Report Type: Spontaneous
  Country: CN (occurrence: CN)
  Receive Date: 20240918
  Receipt Date: 20240918
  Transmission Date: 20241017
  Serious: Yes (Hospitalization)
  Sender: MERCK
  Company Number: CN-009507513-2409CHN005559

PATIENT
  Age: 55 Year
  Sex: Male
  Weight: 54 kg

DRUGS (6)
  1. KEYTRUDA [Suspect]
     Active Substance: PEMBROLIZUMAB
     Indication: Chemotherapy
     Dosage: 200 MG, ONCE
     Route: 041
     Dates: start: 20240819, end: 20240819
  2. KEYTRUDA [Suspect]
     Active Substance: PEMBROLIZUMAB
     Indication: Lip and/or oral cavity cancer
  3. CISPLATIN [Suspect]
     Active Substance: CISPLATIN
     Indication: Chemotherapy
     Dosage: 50 MG, QD
     Route: 041
     Dates: start: 20240819, end: 20240820
  4. CISPLATIN [Suspect]
     Active Substance: CISPLATIN
     Indication: Lip and/or oral cavity cancer
  5. CAPECITABINE [Suspect]
     Active Substance: CAPECITABINE
     Indication: Chemotherapy
     Dosage: 1.5 G, BID
     Route: 048
     Dates: start: 20240819, end: 20240901
  6. CAPECITABINE [Suspect]
     Active Substance: CAPECITABINE
     Indication: Lip and/or oral cavity cancer

REACTIONS (2)
  - Platelet count decreased [Unknown]
  - Product use issue [Unknown]

NARRATIVE: CASE EVENT DATE: 20240819
